FAERS Safety Report 25375018 (Version 2)
Quarter: 2025Q2

REPORT INFORMATION
  Report Type: Spontaneous
  Country: US (occurrence: US)
  Receive Date: 20250529
  Receipt Date: 20250610
  Transmission Date: 20250717
  Serious: No
  Sender: BAUSCH AND LOMB
  Company Number: US-BAUSCHBL-2025BNL009249

PATIENT
  Sex: Male

DRUGS (5)
  1. LOTEMAX [Suspect]
     Active Substance: LOTEPREDNOL ETABONATE
     Indication: Intraocular pressure test
     Dosage: TWICE A DAY
     Route: 047
  2. LOTEMAX [Suspect]
     Active Substance: LOTEPREDNOL ETABONATE
     Indication: Product use in unapproved indication
     Dosage: ONCE A DAY
     Route: 047
     Dates: end: 202303
  3. MURO 128 [Suspect]
     Active Substance: SODIUM CHLORIDE
     Indication: Product used for unknown indication
     Route: 065
  4. ALREX [Suspect]
     Active Substance: LOTEPREDNOL ETABONATE
     Indication: Product used for unknown indication
     Route: 065
  5. RESTASIS [Concomitant]
     Active Substance: CYCLOSPORINE
     Indication: Product used for unknown indication
     Route: 065

REACTIONS (4)
  - Intraocular pressure increased [Unknown]
  - Product availability issue [Unknown]
  - Intentional product use issue [Unknown]
  - Product use in unapproved indication [Unknown]
